FAERS Safety Report 4539201-0 (Version None)
Quarter: 2004Q4

REPORT INFORMATION
  Report Type: 
  Country: None (occurrence: None)
  Receive Date: 20041227
  Receipt Date: 20041227
  Transmission Date: 20050328
  Serious: Yes (Disabling)
  Sender: FDA-Public Use
  Company Number: None

PATIENT
  Age: 47 Year
  Sex: Male
  Weight: 90.7194 kg

DRUGS (2)
  1. PEG INTERFERON   150 MG [Suspect]
     Indication: HEPATITIS C
     Dosage: ONCE PER WK   INTRAMUSCULAR
     Route: 030
     Dates: start: 20021125, end: 20031102
  2. REBOTRON [Suspect]
     Indication: HEPATITIS C
     Dosage: 4 PILLS DAILY ORAL
     Route: 048
     Dates: start: 20021125, end: 20031102

REACTIONS (2)
  - DEPRESSION [None]
  - FATIGUE [None]
